FAERS Safety Report 15854111 (Version 1)
Quarter: 2019Q1

REPORT INFORMATION
  Report Type: Spontaneous
  Country: CA (occurrence: CA)
  Receive Date: 20190122
  Receipt Date: 20190122
  Transmission Date: 20190417
  Serious: Yes (Other)
  Sender: FDA-Public Use
  Company Number: CA-PFIZER INC-2019025286

PATIENT
  Age: 57 Year
  Sex: Female

DRUGS (1)
  1. METHOTREXATE SODIUM. [Suspect]
     Active Substance: METHOTREXATE SODIUM
     Dosage: UNK

REACTIONS (8)
  - Drug intolerance [Unknown]
  - Vomiting [Unknown]
  - Hepatitis [Unknown]
  - Hepatic enzyme increased [Unknown]
  - Disease recurrence [Unknown]
  - Dyspepsia [Unknown]
  - Synovitis [Unknown]
  - Nausea [Unknown]

NARRATIVE: CASE EVENT DATE: 20190115
